FAERS Safety Report 5267141-0 (Version None)
Quarter: 2007Q1

REPORT INFORMATION
  Report Type: 
  Country: None (occurrence: None)
  Receive Date: 20070316
  Receipt Date: 20070301
  Transmission Date: 20070707
  Serious: Yes (Disabling)
  Sender: FDA-Public Use
  Company Number: US-AMGEN-US213410

PATIENT
  Sex: Female
  Weight: 104.4 kg

DRUGS (1)
  1. ENBREL [Suspect]
     Indication: SPONDYLOARTHROPATHY
     Route: 065
     Dates: start: 20061201, end: 20061201

REACTIONS (1)
  - RASH GENERALISED [None]
